FAERS Safety Report 14266434 (Version 1)
Quarter: 2017Q4

REPORT INFORMATION
  Report Type: Spontaneous
  Country: US (occurrence: US)
  Receive Date: 20171208
  Receipt Date: 20171208
  Transmission Date: 20180321
  Serious: Yes (Disabling, Other)
  Sender: FDA-Public Use
  Company Number: None

PATIENT
  Age: 63 Year
  Weight: 82.8 kg

DRUGS (23)
  1. GUAIFENESIN. [Concomitant]
     Active Substance: GUAIFENESIN
  2. MONTELUKAST [Concomitant]
     Active Substance: MONTELUKAST SODIUM
  3. CROMOLYN [Concomitant]
     Active Substance: CROMOLYN
  4. LORATADINE. [Concomitant]
     Active Substance: LORATADINE
  5. VITAMIN D [Concomitant]
     Active Substance: CHOLECALCIFEROL
  6. CANDESARTAN. [Concomitant]
     Active Substance: CANDESARTAN
  7. FENOFFENADINE [Concomitant]
  8. MAGNESIUM [Concomitant]
     Active Substance: MAGNESIUM
  9. TERIPARATIDE [Concomitant]
     Active Substance: TERIPARATIDE
  10. THYROID [Concomitant]
     Active Substance: LEVOTHYROXINE\LIOTHYRONINE
  11. PROPRANOLOL [Concomitant]
     Active Substance: PROPRANOLOL HYDROCHLORIDE
  12. VITAMIN C [Concomitant]
     Active Substance: ASCORBIC ACID
  13. CALCIUM [Concomitant]
     Active Substance: CALCIUM
  14. ONABOTULINUMTOXINA [Suspect]
     Active Substance: ONABOTULINUMTOXINA
     Indication: MIGRAINE
     Dosage: ?          OTHER STRENGTH:^UNITS^;QUANTITY:31 INJECTION(S);OTHER FREQUENCY:ONE-TIME TREATMENT;OTHER ROUTE:INJECTED INTO MUSCLES HEAD + UPPER NECK?
     Dates: start: 20170307, end: 20170307
  15. NARATRIPTAN [Concomitant]
     Active Substance: NARATRIPTAN HYDROCHLORIDE
  16. GABAPENTIN. [Concomitant]
     Active Substance: GABAPENTIN
  17. SPIRONOLACTONE. [Concomitant]
     Active Substance: SPIRONOLACTONE
  18. CLONIDINE. [Concomitant]
     Active Substance: CLONIDINE
  19. HYDRALAZINE [Concomitant]
     Active Substance: HYDRALAZINE HYDROCHLORIDE
  20. LYRICA [Concomitant]
     Active Substance: PREGABALIN
  21. SLONIACIN [Concomitant]
  22. MELATONIN [Concomitant]
     Active Substance: MELATONIN
  23. ZINC. [Concomitant]
     Active Substance: ZINC

REACTIONS (5)
  - Cerebrovascular accident [None]
  - Hypoaesthesia [None]
  - Gait disturbance [None]
  - Speech disorder [None]
  - Transient ischaemic attack [None]

NARRATIVE: CASE EVENT DATE: 20170307
